FAERS Safety Report 8816645 (Version 1)
Quarter: 2012Q4

REPORT INFORMATION
  Report Type: Spontaneous
  Country: ES (occurrence: None)
  Receive Date: 20120928
  Receipt Date: 20120928
  Transmission Date: 20130627
  Serious: Yes (Other)
  Sender: FDA-Public Use
  Company Number: 2012-003401

PATIENT
  Age: 46 Year
  Sex: Female

DRUGS (3)
  1. RISEDRONATE SODIUM [Suspect]
     Route: 048
  2. LORMETAZEPAM [Concomitant]
  3. GLIZOLAN (DIACEREIN) [Concomitant]

REACTIONS (1)
  - Osteoarthritis [None]
